FAERS Safety Report 9926291 (Version 1)
Quarter: 2014Q1

REPORT INFORMATION
  Report Type: Spontaneous
  Country: US (occurrence: US)
  Receive Date: 20140226
  Receipt Date: 20140226
  Transmission Date: 20141002
  Serious: No
  Sender: FDA-Public Use
  Company Number: US-AMGEN-USASP2013082734

PATIENT
  Age: 82 Year
  Sex: Female
  Weight: 56.69 kg

DRUGS (12)
  1. ENBREL [Suspect]
     Indication: PRODUCT USED FOR UNKNOWN INDICATION
     Dosage: 50 MG, QWK
     Route: 058
  2. ENBREL [Suspect]
  3. METHOTREXATE [Concomitant]
     Dosage: 2.5 MG, UNK
     Route: 048
  4. SYNTHROID [Concomitant]
     Dosage: MCG
     Route: 048
  5. PREDNISONE [Concomitant]
     Dosage: 2.5 MG, UNK
     Route: 048
  6. FOLIC ACID [Concomitant]
     Dosage: UNK
  7. OMEGA-3                            /01866101/ [Concomitant]
     Dosage: UNK
  8. VITAMIN C                          /00008001/ [Concomitant]
     Dosage: 100 MG, UNK
  9. VITAMIN D3 [Concomitant]
     Dosage: 500 UNIT, UNK
  10. MAGNESIUM [Concomitant]
     Dosage: 250 MG, UNK
  11. ADVIL                              /00044201/ [Concomitant]
     Dosage: 200 MG, UNK
  12. CALCIUM [Concomitant]
     Dosage: 500 UNK, UNK

REACTIONS (1)
  - Injection site discolouration [Unknown]
